FAERS Safety Report 6391966-1 (Version None)
Quarter: 2009Q4

REPORT INFORMATION
  Report Type: 
  Country: None (occurrence: None)
  Receive Date: 20091007
  Receipt Date: 20090929
  Transmission Date: 20100525
  Serious: Yes (Death, Hospitalization)
  Sender: FDA-Public Use
  Company Number: A0810468A

PATIENT
  Age: 73 Year
  Sex: Female

DRUGS (1)
  1. AVANDIA [Suspect]
     Indication: DIABETES MELLITUS
     Dosage: 8MG PER DAY
     Route: 065
     Dates: start: 20020101, end: 20050411

REACTIONS (4)
  - CARDIAC ARREST [None]
  - FATIGUE [None]
  - FLUID RETENTION [None]
  - MYOCARDIAL INFARCTION [None]
